FAERS Safety Report 5031502-5 (Version None)
Quarter: 2006Q2

REPORT INFORMATION
  Report Type: 
  Country: None (occurrence: None)
  Receive Date: 20060616
  Receipt Date: 20060609
  Transmission Date: 20061013
  Serious: Yes (Hospitalization)
  Sender: FDA-Public Use
  Company Number: 8056

PATIENT
  Age: 61 Year
  Sex: Male

DRUGS (4)
  1. NITROGLYCERIN [Suspect]
     Indication: ANGINA PECTORIS
     Dosage: PRN
     Dates: start: 20041001
  2. PLAVIX [Concomitant]
  3. MEVACOR [Concomitant]
  4. ZETIA [Concomitant]

REACTIONS (4)
  - CARDIAC DISORDER [None]
  - CORONARY ARTERY OCCLUSION [None]
  - DRUG INEFFECTIVE [None]
  - ISCHAEMIA [None]
